FAERS Safety Report 4382236-1 (Version None)
Quarter: 2004Q2

REPORT INFORMATION
  Report Type: 
  Country: None (occurrence: None)
  Receive Date: 20040616
  Receipt Date: 20040603
  Transmission Date: 20050107
  Serious: Yes (Life-Threatening, Hospitalization)
  Sender: FDA-Public Use
  Company Number: 2004-BP-02561NB

PATIENT
  Age: 79 Year
  Sex: Female

DRUGS (6)
  1. MEXITIL [Suspect]
     Indication: VENTRICULAR EXTRASYSTOLES
     Dosage: 300 MG (50 MG )
     Route: 048
     Dates: start: 20021202, end: 20031208
  2. OMEPRAZOLE [Suspect]
     Indication: STOMACH DISCOMFORT
     Dosage: PO
     Route: 048
     Dates: start: 20031121, end: 20031203
  3. ALMARL (AROTINOLOL HYDROCHLORIDE) (TA) [Concomitant]
  4. NITOROL R (KAP) [Concomitant]
  5. MUNOBAL (FELODIPINE) (TA) [Concomitant]
  6. JUVELA N (TOCOPHEROL NCOTINATE) (KAW) [Concomitant]

REACTIONS (1)
  - STEVENS-JOHNSON SYNDROME [None]
